FAERS Safety Report 13488459 (Version 1)
Quarter: 2017Q2

REPORT INFORMATION
  Report Type: Spontaneous
  Country: US (occurrence: US)
  Receive Date: 20170426
  Receipt Date: 20170426
  Transmission Date: 20170830
  Serious: No
  Sender: FDA-Public Use
  Company Number: None

PATIENT
  Age: 67 Year
  Sex: Male
  Weight: 104 kg

DRUGS (1)
  1. VANCOMYCIN [Suspect]
     Active Substance: VANCOMYCIN
     Indication: CARDIAC OPERATION
     Route: 042
     Dates: start: 20170418, end: 20170418

REACTIONS (3)
  - Flushing [None]
  - Hypotension [None]
  - Red man syndrome [None]

NARRATIVE: CASE EVENT DATE: 20170418
